FAERS Safety Report 13553749 (Version 2)
Quarter: 2017Q2

REPORT INFORMATION
  Report Type: Spontaneous
  Country: DE (occurrence: DE)
  Receive Date: 20170517
  Receipt Date: 20170522
  Transmission Date: 20170830
  Serious: Yes (Hospitalization, Other)
  Sender: FDA-Public Use
  Company Number: DE-BRISTOL-MYERS SQUIBB COMPANY-BMS-2017-041495

PATIENT
  Age: 40 Year
  Sex: Female

DRUGS (4)
  1. NIVOLUMAB [Suspect]
     Active Substance: NIVOLUMAB
     Indication: PRODUCT USED FOR UNKNOWN INDICATION
     Dosage: 1 MG/KG, Q3WK
     Route: 065
     Dates: start: 20160708, end: 20160708
  2. IPILIMUMAB [Suspect]
     Active Substance: IPILIMUMAB
     Indication: PRODUCT USED FOR UNKNOWN INDICATION
     Dosage: 3MG/KG, Q3WK
     Route: 065
     Dates: start: 20160718, end: 20160718
  3. NIVOLUMAB [Suspect]
     Active Substance: NIVOLUMAB
     Indication: METASTATIC MALIGNANT MELANOMA
     Dosage: 1 MG/KG, Q3WK
     Route: 065
     Dates: start: 20160617, end: 20160617
  4. IPILIMUMAB [Suspect]
     Active Substance: IPILIMUMAB
     Indication: METASTATIC MALIGNANT MELANOMA
     Dosage: 3 MG/KG, Q3WK
     Route: 065
     Dates: start: 20160617, end: 20160617

REACTIONS (12)
  - Cholangitis [Unknown]
  - Fatigue [Unknown]
  - Rash maculo-papular [Unknown]
  - Gingival bleeding [Unknown]
  - Pleural effusion [Unknown]
  - Autoimmune hepatitis [Unknown]
  - Peripheral sensorimotor neuropathy [Unknown]
  - Ascites [Unknown]
  - Cholecystitis [Unknown]
  - Hair colour changes [Unknown]
  - Splenomegaly [Unknown]
  - Chromaturia [Unknown]
